FAERS Safety Report 6613575-9 (Version None)
Quarter: 2010Q1

REPORT INFORMATION
  Report Type: 
  Country: None (occurrence: None)
  Receive Date: 20100304
  Receipt Date: 20100224
  Transmission Date: 20100710
  Serious: Yes (Hospitalization)
  Sender: FDA-Public Use
  Company Number: JP-ROCHE-675804

PATIENT
  Sex: Female

DRUGS (11)
  1. TOCILIZUMAB [Suspect]
     Indication: RHEUMATOID ARTHRITIS
     Route: 041
     Dates: start: 20090116, end: 20090116
  2. TOCILIZUMAB [Suspect]
     Route: 041
     Dates: start: 20090210, end: 20090210
  3. PREDONINE [Suspect]
     Indication: RHEUMATOID ARTHRITIS
     Route: 048
     Dates: end: 20090116
  4. PREDONINE [Suspect]
     Route: 048
     Dates: start: 20090117
  5. RHEUMATREX [Suspect]
     Indication: RHEUMATOID ARTHRITIS
     Route: 048
  6. RIMATIL [Concomitant]
     Route: 048
  7. ISCOTIN [Concomitant]
     Route: 048
  8. MOBIC [Concomitant]
     Route: 048
  9. BONALON [Concomitant]
     Route: 048
  10. FOLIAMIN [Concomitant]
     Dosage: FORM: ORAL FORMULATION (NOT OTHERWISE SPECIFIED).
     Route: 048
  11. JUVELA [Concomitant]
     Route: 048

REACTIONS (1)
  - SYSTEMIC MYCOSIS [None]
